FAERS Safety Report 4693586-3 (Version None)
Quarter: 2005Q2

REPORT INFORMATION
  Report Type: 
  Country: None (occurrence: None)
  Receive Date: 20050615
  Receipt Date: 20050603
  Transmission Date: 20051028
  Serious: Yes (Death, Other)
  Sender: FDA-Public Use
  Company Number: BRO-008692

PATIENT
  Age: 87 Year
  Sex: Female

DRUGS (11)
  1. IOPAMIDOL / IOPAMIRON 370 (BATCH #(S): 51773) [Suspect]
     Indication: COMPUTERISED TOMOGRAM
     Dosage: 100 ML
     Route: 042
     Dates: start: 20050511, end: 20050511
  2. IOPAMIDOL / IOPAMIRON 370 (BATCH #(S): 51773) [Suspect]
     Indication: PULMONARY EMBOLISM
     Dosage: 100 ML
     Route: 042
     Dates: start: 20050511, end: 20050511
  3. ACETYLSALICYLIC ACID SRT [Concomitant]
  4. ASPARA-CA [Concomitant]
  5. BONALON [Concomitant]
  6. DESYREL [Concomitant]
  7. MEROPEN (MEROPENEM) [Concomitant]
  8. VEEN-F [Concomitant]
  9. PRIMPERAN TAB [Concomitant]
  10. RINGERS INJECTION IN PLASTIC CONTAINER [Concomitant]
  11. OXYGEN [Concomitant]

REACTIONS (8)
  - BLOOD PRESSURE DECREASED [None]
  - BRADYCARDIA [None]
  - CARDIAC FAILURE [None]
  - FEELING ABNORMAL [None]
  - HYPERSENSITIVITY [None]
  - LOSS OF CONSCIOUSNESS [None]
  - OXYGEN SATURATION DECREASED [None]
  - RESPIRATORY ARREST [None]
